FAERS Safety Report 25018125 (Version 4)
Quarter: 2025Q2

REPORT INFORMATION
  Report Type: Report from Study
  Country: NL (occurrence: NL)
  Receive Date: 20250227
  Receipt Date: 20250505
  Transmission Date: 20250717
  Serious: Yes (Death, Hospitalization, Other)
  Sender: SANOFI AVENTIS
  Company Number: NL-SA-2025SA057817

PATIENT
  Age: 61 Year
  Sex: Male

DRUGS (1)
  1. ALGLUCOSIDASE ALFA [Suspect]
     Active Substance: ALGLUCOSIDASE ALFA
     Indication: Glycogen storage disease type II
     Dosage: 1550MG/388ML - 1.00 X PER 2 WEEKS (QOW)
     Route: 042
     Dates: start: 20110922

REACTIONS (20)
  - Respiratory failure [Fatal]
  - Dyspnoea [Not Recovered/Not Resolved]
  - Body temperature decreased [Unknown]
  - Chills [Recovering/Resolving]
  - Dizziness [Recovering/Resolving]
  - Nausea [Recovered/Resolved]
  - Vomiting [Recovered/Resolved]
  - Blood pressure increased [Recovering/Resolving]
  - Non-small cell lung cancer stage IV [Unknown]
  - Nasal congestion [Unknown]
  - Rhinorrhoea [Unknown]
  - Superior vena cava syndrome [Unknown]
  - C-reactive protein increased [Unknown]
  - General physical health deterioration [Unknown]
  - Arthropathy [Unknown]
  - Dyspnoea [Unknown]
  - Respiratory tract infection viral [Unknown]
  - Glycogen storage disease type II [Unknown]
  - Condition aggravated [Unknown]
  - Myalgia [Unknown]

NARRATIVE: CASE EVENT DATE: 20240501
